FAERS Safety Report 4805743-3 (Version None)
Quarter: 2005Q4

REPORT INFORMATION
  Report Type: 
  Country: None (occurrence: None)
  Receive Date: 20051021
  Receipt Date: 20051013
  Transmission Date: 20060501
  Serious: Yes (Other)
  Sender: FDA-Public Use
  Company Number: NZ-ROCHE-420928

PATIENT
  Sex: Male

DRUGS (2)
  1. PEG-INTERFERON ALFA NOS [Suspect]
     Indication: DRUG USE FOR UNKNOWN INDICATION
     Route: 065
  2. RIBAVIRIN [Suspect]
     Indication: DRUG USE FOR UNKNOWN INDICATION
     Route: 065

REACTIONS (2)
  - HAEMOGLOBIN DECREASED [None]
  - PULMONARY HYPERTENSION [None]
